FAERS Safety Report 12251703 (Version 2)
Quarter: 2016Q2

REPORT INFORMATION
  Report Type: Report from Study
  Country: US (occurrence: US)
  Receive Date: 20160411
  Receipt Date: 20160415
  Transmission Date: 20160815
  Serious: Yes (Other)
  Sender: FDA-Public Use
  Company Number: US-AMGEN-USASP2016043118

PATIENT
  Age: 53 Year
  Sex: Male

DRUGS (1)
  1. ENBREL [Suspect]
     Active Substance: ETANERCEPT
     Indication: RHEUMATOID ARTHRITIS
     Dosage: 50 MG, QWK
     Route: 065
     Dates: start: 201601

REACTIONS (6)
  - Drug dose omission [Unknown]
  - Injection site swelling [Unknown]
  - Rheumatoid arthritis [Unknown]
  - Underdose [Unknown]
  - Injection site pain [Unknown]
  - Injection site extravasation [Unknown]

NARRATIVE: CASE EVENT DATE: 2016
